FAERS Safety Report 14300163 (Version 1)
Quarter: 2017Q4

REPORT INFORMATION
  Report Type: Spontaneous
  Country: FR (occurrence: FR)
  Receive Date: 20171219
  Receipt Date: 20171219
  Transmission Date: 20180321
  Serious: Yes (Other)
  Sender: FDA-Public Use
  Company Number: FR-MERCK KGAA-2037368

PATIENT
  Age: 42 Year
  Sex: Female

DRUGS (1)
  1. NOVOTHYROX [Suspect]
     Active Substance: LEVOTHYROXINE SODIUM
     Indication: PRODUCT USED FOR UNKNOWN INDICATION
     Dates: start: 201706

REACTIONS (18)
  - Vertigo [Recovered/Resolved]
  - Apathy [Recovered/Resolved]
  - Pain in extremity [Recovered/Resolved]
  - Back pain [Recovered/Resolved]
  - Disturbance in attention [Recovered/Resolved]
  - Muscle spasms [Recovered/Resolved]
  - Somnolence [Recovered/Resolved]
  - Amnesia [Recovered/Resolved]
  - Emotional distress [Recovered/Resolved]
  - Fatigue [Recovered/Resolved]
  - Asthenia [Recovered/Resolved]
  - Constipation [Recovered/Resolved]
  - Social avoidant behaviour [Recovered/Resolved]
  - Dysstasia [Recovered/Resolved]
  - Depression [Recovered/Resolved]
  - Paraesthesia [Recovered/Resolved]
  - Impaired work ability [Recovered/Resolved]
  - Suicidal ideation [Recovered/Resolved]

NARRATIVE: CASE EVENT DATE: 2017
